FAERS Safety Report 8795154 (Version 2)
Quarter: 2013Q4

REPORT INFORMATION
  Report Type: Report from Study
  Country: US (occurrence: US)
  Receive Date: 20120917
  Receipt Date: 20131031
  Transmission Date: 20140711
  Serious: Yes (Death, Hospitalization)
  Sender: FDA-Public Use
  Company Number: US-MERCK-1209GBR003493

PATIENT
  Age: 59 Year
  Sex: Male
  Weight: 61.69 kg

DRUGS (6)
  1. BLINDED CAPECITABINE [Suspect]
     Indication: SQUAMOUS CELL CARCINOMA OF HEAD AND NECK
     Dosage: 300 MG, QD
     Route: 048
     Dates: start: 20120831
  2. BLINDED PLACEBO [Suspect]
     Indication: SQUAMOUS CELL CARCINOMA OF HEAD AND NECK
     Dosage: 300 MG, QD
     Route: 048
     Dates: start: 20120831
  3. BLINDED POST TRIAL THERAPY [Suspect]
     Indication: SQUAMOUS CELL CARCINOMA OF HEAD AND NECK
     Dosage: 300 MG, QD
     Route: 048
     Dates: start: 20120831
  4. BLINDED PRE TRIAL THERAPY [Suspect]
     Indication: SQUAMOUS CELL CARCINOMA OF HEAD AND NECK
     Dosage: 300 MG, QD
     Route: 048
     Dates: start: 20120831
  5. BLINDED VORINOSTAT [Suspect]
     Indication: SQUAMOUS CELL CARCINOMA OF HEAD AND NECK
     Dosage: 300 MG, QD
     Route: 048
     Dates: start: 20120831
  6. XELODA [Suspect]
     Indication: SQUAMOUS CELL CARCINOMA OF HEAD AND NECK
     Dosage: 1000 MG/M2, BID, 1-14 DAYS
     Route: 048
     Dates: start: 20120831, end: 20120905

REACTIONS (1)
  - Respiratory failure [Fatal]
